FAERS Safety Report 4457966-3 (Version None)
Quarter: 2004Q4

REPORT INFORMATION
  Report Type: 
  Country: None (occurrence: None)
  Receive Date: 20040922
  Receipt Date: 20040910
  Transmission Date: 20050328
  Serious: No
  Sender: FDA-Public Use
  Company Number: 04P-087-0270911-00

PATIENT
  Age: 32 Year
  Sex: Female

DRUGS (7)
  1. NORVIR [Suspect]
     Indication: HIV INFECTION
     Dosage: 100 MG, 1 IN 1 D, PER ORAL
     Route: 048
     Dates: start: 20040717
  2. ATAZANAVIR [Suspect]
     Indication: HIV INFECTION
     Dosage: 300 MG , 1 IN 1 D, PER ORAL
     Route: 048
     Dates: start: 20040717
  3. LAMIVUDINE [Suspect]
     Indication: HIV INFECTION
     Dosage: 150 MG, 2 IN 1 D, PER ORAL
     Route: 048
     Dates: start: 20040717
  4. TENOFOVIR [Suspect]
     Indication: HIV INFECTION
     Dosage: 300 MG, 1 IN 1D, PER ORAL
     Route: 048
     Dates: start: 20040717
  5. ZIDOVUDINE [Concomitant]
  6. INDINAVIR [Concomitant]
  7. NELFINAVIR [Concomitant]

REACTIONS (3)
  - ERYTHEMA [None]
  - HYPERBILIRUBINAEMIA [None]
  - NAIL DISORDER [None]
